FAERS Safety Report 5510966-4 (Version None)
Quarter: 2007Q4

REPORT INFORMATION
  Report Type: 
  Country: None (occurrence: None)
  Receive Date: 20071109
  Receipt Date: 20071031
  Transmission Date: 20080405
  Serious: Yes (Other)
  Sender: FDA-Public Use
  Company Number: PHBS2006JP18249

PATIENT
  Age: 23 Year
  Sex: Female

DRUGS (1)
  1. RITALIN [Suspect]
     Indication: DEPRESSION
     Dosage: 30-60 TABS/DAILY
     Route: 048
     Dates: start: 20051201, end: 20060830

REACTIONS (6)
  - APATHY [None]
  - DRUG TOXICITY [None]
  - HALLUCINATION, AUDITORY [None]
  - NERVOUSNESS [None]
  - OVERDOSE [None]
  - TRICHOTILLOMANIA [None]
